FAERS Safety Report 15303646 (Version 1)
Quarter: 2018Q3

REPORT INFORMATION
  Report Type: Report from Study
  Country: US (occurrence: US)
  Receive Date: 20180821
  Receipt Date: 20180821
  Transmission Date: 20181010
  Serious: No
  Sender: FDA-Public Use
  Company Number: US-AMGEN INC.-USASL2018081269

PATIENT
  Age: 35 Year
  Sex: Female

DRUGS (3)
  1. AIMOVIG [Suspect]
     Active Substance: ERENUMAB-AOOE
     Indication: MIGRAINE PROPHYLAXIS
     Dosage: 70 MG, QMO
     Route: 065
     Dates: start: 20180525, end: 2018
  2. BENADRYL [Suspect]
     Active Substance: DIPHENHYDRAMINE HYDROCHLORIDE
     Indication: MIGRAINE
     Dosage: UNK
     Route: 065
  3. AXERT [Suspect]
     Active Substance: ALMOTRIPTAN MALATE
     Indication: MIGRAINE
     Dosage: 25 MG, UNK
     Route: 065

REACTIONS (5)
  - Migraine [Recovered/Resolved]
  - Therapeutic response unexpected [Unknown]
  - Vertigo [Unknown]
  - Loss of personal independence in daily activities [Not Recovered/Not Resolved]
  - Inhibitory drug interaction [Unknown]

NARRATIVE: CASE EVENT DATE: 2018
